FAERS Safety Report 4781728-0 (Version None)
Quarter: 2005Q3

REPORT INFORMATION
  Report Type: 
  Country: None (occurrence: None)
  Receive Date: 20050927
  Receipt Date: 20050914
  Transmission Date: 20060218
  Serious: Yes (Death)
  Sender: FDA-Public Use
  Company Number: 2005129058

PATIENT
  Age: 79 Year
  Sex: 0

DRUGS (2)
  1. PHENYLEPHRINE (PHENYLEPHRINE) [Suspect]
  2. FLUORESCEIN (FLUORESCEIN) [Suspect]

REACTIONS (2)
  - ADVERSE DRUG REACTION [None]
  - OVERDOSE [None]
